FAERS Safety Report 7578231-1 (Version None)
Quarter: 2011Q2

REPORT INFORMATION
  Report Type: 
  Country: None (occurrence: None)
  Receive Date: 20110628
  Receipt Date: 20110620
  Transmission Date: 20111010
  Serious: Yes (Other)
  Sender: FDA-Public Use
  Company Number: B0728361A

PATIENT
  Age: 8 Year

DRUGS (1)
  1. FLUTICASONE PROPIONATE [Suspect]
     Indication: ASTHMA
     Dosage: 1IUAX PER DAY
     Route: 055
     Dates: start: 20110619, end: 20110620

REACTIONS (1)
  - INTENTIONAL DRUG MISUSE [None]
